FAERS Safety Report 9162797 (Version 2)
Quarter: 2013Q2

REPORT INFORMATION
  Report Type: Spontaneous
  Country: JP (occurrence: None)
  Receive Date: 20130225
  Receipt Date: 20130426
  Transmission Date: 20140414
  Serious: Yes (Other)
  Sender: FDA-Public Use
  Company Number: JP-010950

PATIENT
  Age: 88 Year
  Sex: Male
  Weight: 44 kg

DRUGS (6)
  1. DEGARELIX (GONAX) [Suspect]
     Indication: PROSTATE CANCER
     Dosage: (80 MG 1X/MONTH)
     Route: 058
     Dates: start: 20130205, end: 20130205
  2. URIEF [Concomitant]
  3. EVIPROSTAT/05927901/ [Concomitant]
  4. PREDONINE /00016201/ [Concomitant]
  5. AVOLVE [Concomitant]
  6. URSODEOXYCHOLIC ACID [Concomitant]

REACTIONS (4)
  - Injection site pain [None]
  - Injection site swelling [None]
  - Injection site erythema [None]
  - Injection site induration [None]
